FAERS Safety Report 18399754 (Version 1)
Quarter: 2020Q4

REPORT INFORMATION
  Report Type: Spontaneous
  Country: US (occurrence: US)
  Receive Date: 20201019
  Receipt Date: 20201019
  Transmission Date: 20210114
  Serious: No
  Sender: FDA-Public Use
  Company Number: US-ALLERGAN-2015378US

PATIENT
  Age: 34 Year
  Sex: Male

DRUGS (2)
  1. ZYRTEC [Concomitant]
     Active Substance: CETIRIZINE HYDROCHLORIDE
     Indication: HYPERSENSITIVITY
  2. VRAYLAR [Suspect]
     Active Substance: CARIPRAZINE
     Indication: BIPOLAR DISORDER
     Dosage: 1.5 MG, QD
     Route: 065
     Dates: start: 202003

REACTIONS (7)
  - Vision blurred [Recovered/Resolved]
  - Abdominal discomfort [Recovered/Resolved]
  - Product dispensing error [Unknown]
  - Weight increased [Recovered/Resolved]
  - Headache [Recovered/Resolved]
  - Arthralgia [Not Recovered/Not Resolved]
  - Motion sickness [Recovered/Resolved]

NARRATIVE: CASE EVENT DATE: 202003
